FAERS Safety Report 14100591 (Version 4)
Quarter: 2018Q2

REPORT INFORMATION
  Report Type: Report from Study
  Country: DE (occurrence: DE)
  Receive Date: 20171017
  Receipt Date: 20180614
  Transmission Date: 20180711
  Serious: Yes (Hospitalization, Other)
  Sender: FDA-Public Use
  Company Number: DE-BEH-2017083741

PATIENT
  Age: 88 Year
  Sex: Female
  Weight: 67 kg

DRUGS (11)
  1. NOVALGIN                           /00169801/ [Concomitant]
     Active Substance: ACETAMINOPHEN\CAFFEINE\PROPYPHENAZONE
     Route: 065
  2. MARCUMAR [Concomitant]
     Active Substance: PHENPROCOUMON
     Route: 065
  3. CANDESARTAN. [Concomitant]
     Active Substance: CANDESARTAN
     Route: 065
  4. OMEP                               /00661201/ [Concomitant]
     Active Substance: OMEPRAZOLE
     Route: 065
  5. THYRONAJOD [Concomitant]
     Active Substance: LEVOTHYROXINE SODIUM\POTASSIUM IODIDE
     Route: 065
  6. FUROSEMIDE. [Concomitant]
     Active Substance: FUROSEMIDE
     Route: 065
  7. PRIVIGEN [Suspect]
     Active Substance: HUMAN IMMUNOGLOBULIN G
     Dosage: 10 G, TOT
     Route: 042
     Dates: start: 20170816, end: 20170816
  8. FENISTIL [Concomitant]
     Active Substance: DIMETHINDENE
     Indication: PROPHYLAXIS
     Dosage: 4 MG, QD
     Route: 042
     Dates: start: 20170913
  9. AMIODARON                          /00133101/ [Concomitant]
     Active Substance: AMIODARONE
     Route: 065
  10. PRIVIGEN [Suspect]
     Active Substance: HUMAN IMMUNOGLOBULIN G
     Indication: SECONDARY IMMUNODEFICIENCY
     Dosage: 10 G, TOT
     Route: 042
     Dates: start: 20170913, end: 20170913
  11. PRIVIGEN [Suspect]
     Active Substance: HUMAN IMMUNOGLOBULIN G
     Dosage: 10 G, TOT
     Route: 042
     Dates: start: 20170619, end: 20170619

REACTIONS (6)
  - Chills [Recovered/Resolved]
  - Proteus infection [Unknown]
  - Anaphylactic reaction [Recovered/Resolved]
  - Dyspnoea [Recovered/Resolved]
  - Escherichia urinary tract infection [Unknown]
  - Hypersensitivity [Recovered/Resolved]

NARRATIVE: CASE EVENT DATE: 20170913
